FAERS Safety Report 4933231-2 (Version None)
Quarter: 2006Q1

REPORT INFORMATION
  Report Type: 
  Country: None (occurrence: None)
  Receive Date: 20060306
  Receipt Date: 20050525
  Transmission Date: 20060701
  Serious: Yes (Hospitalization)
  Sender: FDA-Public Use
  Company Number: US-MERCK-0505USA03093

PATIENT
  Age: 46 Year
  Sex: Male

DRUGS (2)
  1. VIOXX [Suspect]
     Route: 048
     Dates: start: 19990601, end: 19990701
  2. ULTRAM [Concomitant]
     Route: 065

REACTIONS (27)
  - ACUTE CORONARY SYNDROME [None]
  - ACUTE MYOCARDIAL INFARCTION [None]
  - ANAEMIA [None]
  - ANGINA PECTORIS [None]
  - ANGINA UNSTABLE [None]
  - ANXIETY DISORDER [None]
  - ARTERIOSCLEROSIS [None]
  - ATRIOVENTRICULAR BLOCK SECOND DEGREE [None]
  - CARDIAC DISORDER [None]
  - CHEST PAIN [None]
  - DIVERTICULUM [None]
  - ESSENTIAL HYPERTENSION [None]
  - GASTRITIS [None]
  - GASTROOESOPHAGEAL REFLUX DISEASE [None]
  - HAEMORRHOIDS [None]
  - HEADACHE [None]
  - HYPERCHOLESTEROLAEMIA [None]
  - INCISION SITE CELLULITIS [None]
  - MYOCARDIAL INFARCTION [None]
  - NON-CARDIAC CHEST PAIN [None]
  - PNEUMONITIS [None]
  - PSORIASIS [None]
  - RHINITIS [None]
  - ROAD TRAFFIC ACCIDENT [None]
  - SINUSITIS [None]
  - TENDONITIS [None]
  - VOMITING [None]
